FAERS Safety Report 21788669 (Version 1)
Quarter: 2022Q4

REPORT INFORMATION
  Report Type: Spontaneous
  Country: US (occurrence: US)
  Receive Date: 20221228
  Receipt Date: 20221228
  Transmission Date: 20230112
  Serious: Yes (Hospitalization, Other)
  Sender: FDA-Public Use
  Company Number: US-PFIZER INC-202201386552

PATIENT
  Age: 54 Year
  Sex: Female

DRUGS (10)
  1. OXALIPLATIN [Suspect]
     Active Substance: OXALIPLATIN
     Indication: Adenocarcinoma
     Dosage: UNK, CYCLIC (3 CYCLES)
  2. FLUOROURACIL [Suspect]
     Active Substance: FLUOROURACIL
     Indication: Adenocarcinoma
     Dosage: UNK, CYCLIC (3 CYCLES)
  3. LEUCOVORIN CALCIUM [Suspect]
     Active Substance: LEUCOVORIN CALCIUM
     Indication: Adenocarcinoma
     Dosage: UNK, CYCLIC (3 CYCLES)
  4. DENOSUMAB [Concomitant]
     Active Substance: DENOSUMAB
     Indication: Hypercalcaemia
     Dosage: 120 MG
     Route: 058
  5. CALCITONIN [Concomitant]
     Active Substance: CALCITONIN
     Dosage: UNK, DAILY
  6. ALENDRONATE [Concomitant]
     Active Substance: ALENDRONATE SODIUM
     Indication: Hypercalcaemia
     Dosage: 70 MG, WEEKLY
  7. CINACALCET [Concomitant]
     Active Substance: CINACALCET
     Indication: Hyperparathyroidism
     Dosage: 30 MG, 1X/DAY
  8. PAMIDRONATE [Concomitant]
     Active Substance: PAMIDRONATE DISODIUM
     Indication: Hypercalcaemia
     Dosage: UNK
     Route: 042
  9. CALCITONIN SALMON [Concomitant]
     Active Substance: CALCITONIN SALMON
     Indication: Hypercalcaemia
     Dosage: 300 UNITS, 2X/DAY
     Route: 058
  10. ZOLEDRONIC ACID [Concomitant]
     Active Substance: ZOLEDRONIC ACID
     Indication: Hypercalcaemia
     Dosage: 4 MG (TWO DOSES)
     Route: 042

REACTIONS (3)
  - Drug intolerance [Unknown]
  - Blood calcium decreased [Unknown]
  - Blood parathyroid hormone decreased [Unknown]
